FAERS Safety Report 12397269 (Version 3)
Quarter: 2016Q3

REPORT INFORMATION
  Report Type: Spontaneous
  Country: US (occurrence: US)
  Receive Date: 20160524
  Receipt Date: 20160819
  Transmission Date: 20161109
  Serious: Yes (Other)
  Sender: FDA-Public Use
  Company Number: US-PFIZER INC-2016243959

PATIENT
  Age: 69 Year
  Sex: Female
  Weight: 103 kg

DRUGS (10)
  1. FLECTOR [Suspect]
     Active Substance: DICLOFENAC EPOLAMINE
     Indication: BACK PAIN
     Dosage: 1.3 %, AS NEEDED
     Route: 061
     Dates: end: 20160424
  2. GABAPENTIN. [Concomitant]
     Active Substance: GABAPENTIN
     Indication: HYPOAESTHESIA
     Dosage: UNK, 2X/DAY
     Dates: start: 2000
  3. HUMALOG [Concomitant]
     Active Substance: INSULIN LISPRO
     Dosage: UNK
     Dates: start: 2000
  4. MORPHINE [Concomitant]
     Active Substance: MORPHINE
     Indication: PAIN
     Dosage: 30 MG, AS NEEDED
     Dates: start: 2014, end: 2015
  5. HYDROCODONE BITARTRATE AND ACETAMINOPHEN [Concomitant]
     Active Substance: ACETAMINOPHEN\HYDROCODONE BITARTRATE
     Indication: PAIN
     Dosage: UNK
     Dates: start: 2014
  6. FLECTOR [Suspect]
     Active Substance: DICLOFENAC EPOLAMINE
     Dosage: 1.3 %, UNK
     Dates: start: 1999
  7. MORPHINE [Concomitant]
     Active Substance: MORPHINE
     Dosage: UNK (4 TIME A YEAR)
     Dates: end: 2015
  8. LORTAB [Concomitant]
     Active Substance: ACETAMINOPHEN\HYDROCODONE BITARTRATE
     Indication: PAIN
     Dosage: 10.5 MG, EVERY 4 HRS
     Dates: start: 1987, end: 2014
  9. GABAPENTIN. [Concomitant]
     Active Substance: GABAPENTIN
     Dosage: 600 MG, UNK
     Dates: start: 2012
  10. HUMALOG [Concomitant]
     Active Substance: INSULIN LISPRO
     Indication: DIABETES MELLITUS
     Dosage: 75 IU, DAILY (50 UNITS IN MORNING AND 25 UNITS AT NIGHT)
     Dates: start: 1991

REACTIONS (5)
  - Pain in extremity [Unknown]
  - Impaired healing [Unknown]
  - Expired product administered [Unknown]
  - Drug effect incomplete [Unknown]
  - Nerve injury [Unknown]
